FAERS Safety Report 9171627 (Version 2)
Quarter: 2013Q2

REPORT INFORMATION
  Report Type: Report from Study
  Country: CA (occurrence: CA)
  Receive Date: 20130319
  Receipt Date: 20130422
  Transmission Date: 20140414
  Serious: Yes (Disabling)
  Sender: FDA-Public Use
  Company Number: CA-SHIRE-ALL1-2013-01505

PATIENT
  Age: 31 Year
  Sex: Male
  Weight: 64.6 kg

DRUGS (12)
  1. 602 (DEFERITAZOLE MAGNESIUM) [Suspect]
     Indication: IRON OVERLOAD
     Dosage: 75 MG/KG, 1X/DAY:QD
     Route: 048
     Dates: start: 20121219, end: 20130216
  2. VITAMIN D /00107901/ [Concomitant]
     Indication: VITAMIN SUPPLEMENTATION
     Dosage: UNK, UNKNOWN
     Route: 048
     Dates: start: 20120412, end: 20130314
  3. VITAMIN D /00107901/ [Concomitant]
     Dosage: 10000 IU, 1X/WEEK
     Route: 048
     Dates: start: 20130315
  4. VITAMIN B12                        /00056201/ [Concomitant]
     Indication: VITAMIN SUPPLEMENTATION
     Dosage: 1 DF, 1X/DAY:QD
     Route: 048
     Dates: start: 20130225
  5. VITAMIN B12                        /00056201/ [Concomitant]
     Dosage: UNK
     Dates: end: 20130227
  6. AMITRIPTYLINE [Concomitant]
     Indication: PARAESTHESIA
     Dosage: 25 MG, 1X/DAY:QD (AT NIGHT)
     Route: 048
     Dates: start: 20130221, end: 20130227
  7. AMITRIPTYLINE [Concomitant]
     Indication: NEUROPATHY PERIPHERAL
     Dosage: 125 MG, 1X/DAY:QD (AT NIGHT)
     Route: 048
     Dates: start: 20130228, end: 20130318
  8. GABAPENTIN [Concomitant]
     Indication: MONONEUROPATHY MULTIPLEX
     Dosage: 900 MG, 1X/DAY:QD
     Route: 048
     Dates: start: 20130315
  9. GABAPENTIN [Concomitant]
     Indication: BACK PAIN
     Dosage: 100 MG, 3X/DAY:TID
     Route: 048
     Dates: start: 20130131, end: 20130209
  10. CALCIUM CARBONATE [Concomitant]
     Indication: SUPPLEMENTATION THERAPY
     Dosage: 1000 MG, 1X/DAY:QD
     Route: 048
     Dates: start: 20120412, end: 20130203
  11. VITAMIN E                          /00110501/ [Concomitant]
     Indication: SUPPLEMENTATION THERAPY
     Dosage: 1 DF, 1X/DAY:QD
     Route: 048
     Dates: start: 20120704, end: 20130203
  12. NAPROXENE TEVA [Concomitant]
     Indication: BACK PAIN
     Dosage: 500 MG, 2X/DAY:BID
     Route: 048
     Dates: start: 20130131, end: 20130209

REACTIONS (1)
  - Neuropathy peripheral [Recovering/Resolving]
